FAERS Safety Report 18286471 (Version 1)
Quarter: 2020Q3

REPORT INFORMATION
  Report Type: Report from Study
  Country: None (occurrence: US)
  Receive Date: 20200920
  Receipt Date: 20200920
  Transmission Date: 20201103
  Serious: Yes (Other)
  Sender: FDA-Public Use
  Company Number: US-ABBVIE-20K-163-3565818-00

PATIENT
  Age: 66 Year
  Sex: Female

DRUGS (1)
  1. SKYRIZI [Suspect]
     Active Substance: RISANKIZUMAB-RZAA
     Indication: PSORIASIS
     Route: 058

REACTIONS (8)
  - Ligament sprain [Recovering/Resolving]
  - Hernia [Unknown]
  - Surgery [Unknown]
  - Cholecystectomy [Recovering/Resolving]
  - Joint swelling [Recovering/Resolving]
  - Psoriasis [Recovering/Resolving]
  - Device physical property issue [Unknown]
  - Fall [Recovering/Resolving]

NARRATIVE: CASE EVENT DATE: 202008
